FAERS Safety Report 20392894 (Version 1)
Quarter: 2022Q1

REPORT INFORMATION
  Report Type: Spontaneous
  Country: US (occurrence: US)
  Receive Date: 20220128
  Receipt Date: 20220128
  Transmission Date: 20220423
  Serious: No
  Sender: FDA-Public Use
  Company Number: US-ALLERGAN-2106024US

PATIENT
  Age: 54 Year
  Sex: Male
  Weight: 83 kg

DRUGS (6)
  1. BOTOX [Interacting]
     Active Substance: ONABOTULINUMTOXINA
     Indication: Muscle spasticity
     Dosage: 25 UNITS, SINGLE
     Dates: start: 20210118, end: 20210118
  2. BOTOX [Interacting]
     Active Substance: ONABOTULINUMTOXINA
     Dosage: 50 UNITS, SINGLE
     Dates: start: 20210118, end: 20210118
  3. BOTOX [Interacting]
     Active Substance: ONABOTULINUMTOXINA
     Dosage: 50 UNITS, SINGLE
     Dates: start: 20210118, end: 20210118
  4. BOTOX [Interacting]
     Active Substance: ONABOTULINUMTOXINA
     Dosage: 75 UNITS, SINGLE
     Dates: start: 20210118, end: 20210118
  5. MODERNA COVID-19 VACCINE [Interacting]
     Active Substance: ELASOMERAN
     Indication: COVID-19 immunisation
     Dosage: UNK, SINGLE
     Dates: start: 20210115, end: 20210115
  6. Unspecified transplant medications [Concomitant]
     Indication: Transplant

REACTIONS (10)
  - Multiple sclerosis relapse [Recovered/Resolved]
  - Muscle spasticity [Recovered/Resolved]
  - Myalgia [Recovered/Resolved]
  - Arthralgia [Recovered/Resolved]
  - Chills [Recovered/Resolved]
  - Fatigue [Recovered/Resolved]
  - Drug interaction [Unknown]
  - Pain [Recovered/Resolved]
  - Asthenia [Recovered/Resolved]
  - Drug ineffective [Unknown]

NARRATIVE: CASE EVENT DATE: 20210120
